FAERS Safety Report 24802451 (Version 2)
Quarter: 2025Q3

REPORT INFORMATION
  Report Type: Spontaneous
  Country: EU (occurrence: EU)
  Receive Date: 20250103
  Receipt Date: 20250809
  Transmission Date: 20251020
  Serious: Yes (Other)
  Sender: ALEXION PHARMACEUTICALS
  Company Number: EU-BIOGEN-2024BI01295006

PATIENT
  Sex: Female

DRUGS (2)
  1. TAGRISSO [Interacting]
     Active Substance: OSIMERTINIB
     Indication: Lung neoplasm malignant
     Dosage: 80 MILLIGRAM, QD
     Route: 065
  2. TECFIDERA [Interacting]
     Active Substance: DIMETHYL FUMARATE
     Indication: Multiple sclerosis
     Dosage: 240 MILLIGRAM, QD
     Dates: start: 2012

REACTIONS (5)
  - Lung neoplasm malignant [Unknown]
  - Multiple sclerosis [Unknown]
  - Drug interaction [Unknown]
  - Depression [Unknown]
  - Product use issue [Unknown]
